FAERS Safety Report 5256332-0 (Version None)
Quarter: 2007Q1

REPORT INFORMATION
  Report Type: 
  Country: None (occurrence: None)
  Receive Date: 20061219
  Receipt Date: 20060919
  Transmission Date: 20070707
  Serious: No
  Sender: FDA-Public Use
  Company Number: 2006US002166

PATIENT
  Age: 79 Year
  Sex: Female

DRUGS (3)
  1. VESICARE [Suspect]
     Indication: DRUG USE FOR UNKNOWN INDICATION
     Dosage: 5 MG, ORAL
     Route: 048
     Dates: start: 20060916
  2. FOSAMAX [Concomitant]
  3. LEXAPRO [Concomitant]

REACTIONS (2)
  - DRUG INEFFECTIVE [None]
  - POLLAKIURIA [None]
